FAERS Safety Report 7144864-X (Version None)
Quarter: 2010Q4

REPORT INFORMATION
  Report Type: 
  Country: None (occurrence: None)
  Receive Date: 20101123
  Receipt Date: 20101109
  Transmission Date: 20110411
  Serious: Yes (Death, Hospitalization)
  Sender: FDA-Public Use
  Company Number: 2010004199

PATIENT
  Age: 62 Year
  Sex: Male

DRUGS (7)
  1. ERLOTINIB/PLACEBO (ERLOTINIB) (TABLET) (ERLOTINIB) [Suspect]
     Indication: HEPATIC NEOPLASM MALIGNANT
     Dosage: 150 MG, QD, ORAL
     Route: 048
     Dates: start: 20100916, end: 20100917
  2. SORAFENIB [Suspect]
     Indication: HEPATIC NEOPLASM MALIGNANT
     Dosage: 800 MG, QD), ORAL
     Route: 048
     Dates: start: 20100916, end: 20100917
  3. PROPRANOLOL [Concomitant]
  4. NEXIUM [Concomitant]
  5. VITAMIN B COMPLEX CAP [Concomitant]
  6. ALDACTONE [Concomitant]
  7. GLYBURIDE [Concomitant]

REACTIONS (2)
  - HEPATIC FUNCTION ABNORMAL [None]
  - OESOPHAGEAL VARICES HAEMORRHAGE [None]
